FAERS Safety Report 6077513-2 (Version None)
Quarter: 2009Q1

REPORT INFORMATION
  Report Type: 
  Country: None (occurrence: None)
  Receive Date: 20090211
  Receipt Date: 20090126
  Transmission Date: 20090719
  Serious: Yes (Hospitalization, Other)
  Sender: FDA-Public Use
  Company Number: 000195

PATIENT
  Sex: Male
  Weight: 85 kg

DRUGS (1)
  1. PROSTAVASTIN / 00501501 / (PROSTAVASIN) [Suspect]
     Indication: PERIPHERAL VASCULAR DISORDER
     Dosage: 2 DF BID INTRAVENOUS DRIP
     Route: 041
     Dates: start: 20070529, end: 20070607

REACTIONS (8)
  - ERYTHEMA [None]
  - INCORRECT ROUTE OF DRUG ADMINISTRATION [None]
  - INFLAMMATION [None]
  - INFUSION RELATED REACTION [None]
  - MUSCULOSKELETAL STIFFNESS [None]
  - NECROSIS [None]
  - PERIPHERAL VASCULAR DISORDER [None]
  - PURULENCE [None]
